FAERS Safety Report 12153182 (Version 1)
Quarter: 2016Q1

REPORT INFORMATION
  Report Type: Spontaneous
  Country: US (occurrence: US)
  Receive Date: 20160305
  Receipt Date: 20160305
  Transmission Date: 20160526
  Serious: No
  Sender: FDA-Public Use
  Company Number: US-BIOGEN-2016BI00194545

PATIENT
  Age: 52 Year
  Sex: Female

DRUGS (1)
  1. PLEGRIDY [Suspect]
     Active Substance: PEGINTERFERON BETA-1A
     Indication: MULTIPLE SCLEROSIS
     Route: 065
     Dates: start: 20150602, end: 20150901

REACTIONS (8)
  - Anger [Unknown]
  - Depression [Unknown]
  - Amnesia [Unknown]
  - Self-injurious ideation [Unknown]
  - Crying [Unknown]
  - Mood altered [Unknown]
  - Psychotic disorder [Unknown]
  - Violence-related symptom [Unknown]

NARRATIVE: CASE EVENT DATE: 20150710
